FAERS Safety Report 5545452-9 (Version None)
Quarter: 2007Q4

REPORT INFORMATION
  Report Type: 
  Country: None (occurrence: None)
  Receive Date: 20071211
  Receipt Date: 20071202
  Transmission Date: 20080405
  Serious: Yes (Other)
  Sender: FDA-Public Use
  Company Number: IL-NOVOPROD-269155

PATIENT
  Age: 70 Year
  Sex: Female
  Weight: 83 kg

DRUGS (7)
  1. LEVEMIR [Suspect]
     Indication: INSULIN-REQUIRING TYPE II DIABETES MELLITUS
     Dosage: 60 IU, BID
     Dates: start: 20070707, end: 20071003
  2. NORMITEN [Concomitant]
  3. DISOTHIAZIDE [Concomitant]
  4. CLONEX                             /00101801/ [Concomitant]
  5. ALENDRONATE SODIUM [Concomitant]
  6. ENALADEX [Concomitant]
  7. SIMVASTATIN [Concomitant]

REACTIONS (3)
  - INJECTION SITE INDURATION [None]
  - INJECTION SITE PAIN [None]
  - SKIN HYPERPIGMENTATION [None]
